FAERS Safety Report 14298098 (Version 2)
Quarter: 2018Q1

REPORT INFORMATION
  Report Type: Spontaneous
  Country: US (occurrence: US)
  Receive Date: 20171218
  Receipt Date: 20180109
  Transmission Date: 20180509
  Serious: Yes (Death, Hospitalization, Other)
  Sender: FDA-Public Use
  Company Number: US-PFIZER INC-2017538007

PATIENT
  Age: 87 Year
  Sex: Female

DRUGS (1)
  1. SUTENT [Suspect]
     Active Substance: SUNITINIB MALATE
     Dosage: 25 MG, UNK

REACTIONS (5)
  - Malnutrition [Fatal]
  - Decubitus ulcer [Fatal]
  - Hip fracture [Recovered/Resolved]
  - Neoplasm progression [Fatal]
  - Wound infection [Unknown]

NARRATIVE: CASE EVENT DATE: 2017
